FAERS Safety Report 6286052-5 (Version None)
Quarter: 2009Q3

REPORT INFORMATION
  Report Type: 
  Country: None (occurrence: None)
  Receive Date: 20090728
  Receipt Date: 20090720
  Transmission Date: 20100115
  Serious: Yes (Other)
  Sender: FDA-Public Use
  Company Number: AT-AMGEN-STX356439

PATIENT
  Age: 47 Year
  Sex: Male
  Weight: 67 kg

DRUGS (5)
  1. MIMPARA [Suspect]
     Indication: HYPERPARATHYROIDISM SECONDARY
     Route: 048
     Dates: start: 20060801, end: 20090608
  2. RENAGEL [Concomitant]
     Route: 048
  3. ETALPHA [Concomitant]
     Route: 048
  4. THYREX [Concomitant]
     Route: 048
  5. CALCIUM CARBONATE [Concomitant]
     Route: 048

REACTIONS (3)
  - MUSCLE SPASMS [None]
  - MUSCULOSKELETAL PAIN [None]
  - TONIC CLONIC MOVEMENTS [None]
